FAERS Safety Report 7584444-5 (Version None)
Quarter: 2011Q2

REPORT INFORMATION
  Report Type: 
  Country: None (occurrence: None)
  Receive Date: 20110630
  Receipt Date: 20110620
  Transmission Date: 20111010
  Serious: Yes (Hospitalization, Other)
  Sender: FDA-Public Use
  Company Number: JP-CELGENEUS-087-21880-11012826

PATIENT
  Sex: Male

DRUGS (33)
  1. ACTOS [Concomitant]
     Dosage: 15 MILLIGRAM
     Route: 048
     Dates: start: 20101208
  2. NESINA [Concomitant]
     Indication: DIABETES MELLITUS
     Dosage: 12.5 MILLIGRAM
     Route: 048
     Dates: start: 20101110
  3. CELECOXIB [Concomitant]
     Dosage: 100 MILLIGRAM
     Route: 065
  4. REVLIMID [Suspect]
     Indication: MULTIPLE MYELOMA
     Dosage: 25 MILLIGRAM
     Route: 048
     Dates: start: 20101110, end: 20101230
  5. DEXAMETHASONE [Suspect]
     Dosage: 40 MILLIGRAM
     Route: 048
     Dates: start: 20101208, end: 20101227
  6. DEXAMETHASONE [Suspect]
     Dosage: 40 MILLIGRAM
     Route: 048
     Dates: start: 20110315, end: 20110411
  7. DEXAMETHASONE [Suspect]
     Dosage: 40 MILLIGRAM
     Route: 048
     Dates: start: 20110414, end: 20110501
  8. RABEPRAZOLE SODIUM [Concomitant]
     Dosage: 10 MILLIGRAM
     Route: 048
     Dates: start: 20101208
  9. SELBEX [Concomitant]
     Dosage: 150 MILLIGRAM
     Route: 048
     Dates: start: 20101208
  10. CELECOXIB [Concomitant]
     Dosage: 200 MILLIGRAM
     Route: 048
     Dates: start: 20101208
  11. SELBEX [Concomitant]
     Indication: PROPHYLAXIS
     Dosage: 50 MILLIGRAM
     Route: 048
     Dates: start: 20101110
  12. CELECOXIB [Concomitant]
     Indication: MULTIPLE MYELOMA
     Dosage: 200 MILLIGRAM
     Route: 048
     Dates: start: 20101110
  13. MARZULENE-S [Concomitant]
     Route: 065
  14. REVLIMID [Suspect]
     Dosage: 25 MILLIGRAM
     Route: 048
     Dates: start: 20101208, end: 20101228
  15. DEXAMETHASONE [Suspect]
     Dosage: 40 MILLIGRAM
     Route: 048
     Dates: start: 20110219, end: 20110222
  16. DEXAMETHASONE [Suspect]
     Dosage: 40 MILLIGRAM
     Route: 048
     Dates: start: 20110119, end: 20110122
  17. MIGLITOL [Concomitant]
     Dosage: 150 MILLIGRAM
     Route: 048
     Dates: start: 20101208
  18. RABEPRAZOLE SODIUM [Concomitant]
     Indication: PROPHYLAXIS
     Dosage: 10 MILLIGRAM
     Route: 048
     Dates: start: 20101110
  19. MAGMITT [Concomitant]
     Dosage: 500 MILLIGRAM
     Route: 048
  20. LENDORMIN [Concomitant]
     Dosage: .25 MILLIGRAM
     Route: 048
  21. REVLIMID [Suspect]
     Dosage: 20 MILLIGRAM
     Route: 048
     Dates: start: 20110119, end: 20110126
  22. REVLIMID [Suspect]
     Dosage: 15 MILLIGRAM
     Route: 048
     Dates: start: 20110315, end: 20110404
  23. DEXAMETHASONE [Suspect]
     Indication: MULTIPLE MYELOMA
     Dosage: 40 MILLIGRAM
     Route: 048
     Dates: start: 20101110, end: 20101207
  24. DEXAMETHASONE [Suspect]
     Dosage: 40 MILLIGRAM
     Route: 048
     Dates: start: 20110203, end: 20110206
  25. NESINA [Concomitant]
     Dosage: 12.5 MILLIGRAM
     Route: 048
     Dates: start: 20101208
  26. BONALON [Concomitant]
     Dosage: 35 MILLIGRAM
     Route: 065
  27. ADJUST-A [Concomitant]
     Dosage: 40 MILLIGRAM
     Route: 065
  28. REVLIMID [Suspect]
     Dosage: 15 MILLIGRAM
     Route: 048
     Dates: start: 20110203, end: 20110223
  29. REVLIMID [Suspect]
     Dosage: 15 MILLIGRAM
     Route: 048
     Dates: start: 20110415, end: 20110505
  30. DEXAMETHASONE [Suspect]
     Route: 048
     Dates: start: 20110211, end: 20110214
  31. ASPIRIN [Concomitant]
     Indication: PROPHYLAXIS
     Dosage: 100 MILLIGRAM
     Route: 048
     Dates: start: 20101110
  32. MIGLITOL [Concomitant]
     Indication: DIABETES MELLITUS
     Dosage: 150 MILLIGRAM
     Route: 048
     Dates: start: 20101110
  33. ACTOS [Concomitant]
     Indication: DIABETES MELLITUS
     Dosage: 15 MILLIGRAM
     Route: 048
     Dates: start: 20101110

REACTIONS (5)
  - HAEMOGLOBIN DECREASED [None]
  - PLATELET COUNT DECREASED [None]
  - C-REACTIVE PROTEIN INCREASED [None]
  - DIARRHOEA [None]
  - WHITE BLOOD CELL COUNT DECREASED [None]
